FAERS Safety Report 13785427 (Version 2)
Quarter: 2017Q4

REPORT INFORMATION
  Report Type: Spontaneous
  Country: US (occurrence: US)
  Receive Date: 20170724
  Receipt Date: 20171202
  Transmission Date: 20180320
  Serious: Yes (Hospitalization, Other)
  Sender: FDA-Public Use
  Company Number: US-VIFOR (INTERNATIONAL) INC.-VIT-2016-05309

PATIENT
  Sex: Female

DRUGS (30)
  1. ACETYLSALICYLIC ACID [Concomitant]
     Active Substance: ASPIRIN
  2. CRESTOR [Concomitant]
     Active Substance: ROSUVASTATIN CALCIUM
  3. ISOSORBIDE. [Concomitant]
     Active Substance: ISOSORBIDE
  4. HUMALOG [Concomitant]
     Active Substance: INSULIN LISPRO
  5. SODIUM BICARBONATE. [Concomitant]
     Active Substance: SODIUM BICARBONATE
  6. LASIX [Concomitant]
     Active Substance: FUROSEMIDE
  7. ATORVASTATIN [Concomitant]
     Active Substance: ATORVASTATIN
  8. PROBIOTICS [Concomitant]
     Active Substance: PROBIOTICS NOS
  9. COREG [Concomitant]
     Active Substance: CARVEDILOL
  10. VICTOZA [Concomitant]
     Active Substance: LIRAGLUTIDE
  11. RENAVITE [Concomitant]
     Active Substance: ASCORBIC ACID\BIOTIN\CALCIUM PANTOTHENATE\CYANOCOBALAMIN\FOLIC ACID\NIACINAMIDE\PYRIDOXINE HYDROCHLORIDE\RIBOFLAVIN\THIAMINE MONONITRATE
  12. VELTASSA [Suspect]
     Active Substance: PATIROMER
     Indication: HYPERKALAEMIA
     Route: 048
     Dates: start: 201604
  13. ALLOPURINOL. [Concomitant]
     Active Substance: ALLOPURINOL
  14. HYDROCHLOROTHIAZIDE. [Concomitant]
     Active Substance: HYDROCHLOROTHIAZIDE
  15. PARACETAMOL/HYDROCODONE BITARTRATE [Concomitant]
  16. VALSARTAN. [Concomitant]
     Active Substance: VALSARTAN
  17. NORVASC [Concomitant]
     Active Substance: AMLODIPINE BESYLATE
  18. RENAVIT [Concomitant]
  19. PEPCID [Concomitant]
     Active Substance: FAMOTIDINE
  20. CLONIDINE. [Concomitant]
     Active Substance: CLONIDINE
  21. FAMOTIDINE. [Concomitant]
     Active Substance: FAMOTIDINE
  22. HYDRALAZINE HYDROCHLORIDE. [Concomitant]
     Active Substance: HYDRALAZINE HYDROCHLORIDE
  23. HYDROCODONE [Concomitant]
     Active Substance: HYDROCODONE
     Indication: PAIN
  24. ZOFRAN [Concomitant]
     Active Substance: ONDANSETRON HYDROCHLORIDE
  25. AMLODIPINE BESILATE [Concomitant]
     Active Substance: AMLODIPINE BESYLATE
  26. FISH OIL [Concomitant]
     Active Substance: FISH OIL
  27. FUROSEMIDE. [Concomitant]
     Active Substance: FUROSEMIDE
  28. GABAPENTIN. [Concomitant]
     Active Substance: GABAPENTIN
  29. COLECALCIFEROL [Concomitant]
     Active Substance: CHOLECALCIFEROL
  30. PLAVIX [Concomitant]
     Active Substance: CLOPIDOGREL BISULFATE

REACTIONS (1)
  - Postoperative wound infection [Recovering/Resolving]

NARRATIVE: CASE EVENT DATE: 2016
